FAERS Safety Report 8881846 (Version 1)
Quarter: 2012Q4

REPORT INFORMATION
  Report Type: 
  Country: GB (occurrence: GB)
  Receive Date: 20121102
  Receipt Date: 20121102
  Transmission Date: 20130627
  Serious: Yes (Life-Threatening)
  Sender: FDA-Public Use
  Company Number: GB-BRISTOL-MYERS SQUIBB COMPANY-17059148

PATIENT
  Age: 43 Year
  Sex: Female

DRUGS (5)
  1. IRBESARTAN [Suspect]
  2. DILTIAZEM HCL [Suspect]
  3. GABAPENTIN [Suspect]
  4. CITALOPRAM [Suspect]
  5. DIAZEPAM [Suspect]

REACTIONS (2)
  - Atrioventricular block complete [Not Recovered/Not Resolved]
  - Intentional overdose [Not Recovered/Not Resolved]
